FAERS Safety Report 10616515 (Version 2)
Quarter: 2014Q4

REPORT INFORMATION
  Report Type: Spontaneous
  Country: US (occurrence: US)
  Receive Date: 20141201
  Receipt Date: 20141201
  Transmission Date: 20150529
  Serious: Yes (Disabling, Other)
  Sender: FDA-Public Use
  Company Number: US-BRISTOL-MYERS SQUIBB COMPANY-21564471

PATIENT
  Age: 56 Year
  Sex: Male

DRUGS (2)
  1. SPRYCEL [Suspect]
     Active Substance: DASATINIB
     Indication: ACUTE LYMPHOCYTIC LEUKAEMIA
     Dosage: 1DF:SPRYCEL 70MG - 140 MG TABS?DURATION:DEC12-OCT14.
     Route: 048
     Dates: start: 20121211
  2. NEUPOGEN [Suspect]
     Active Substance: FILGRASTIM
     Dates: start: 201212, end: 201403

REACTIONS (3)
  - Rotator cuff syndrome [Recovered/Resolved]
  - Osteoarthritis [Recovered/Resolved]
  - Bone pain [Recovered/Resolved]

NARRATIVE: CASE EVENT DATE: 201212
